FAERS Safety Report 10507622 (Version 1)
Quarter: 2014Q4

REPORT INFORMATION
  Report Type: Spontaneous
  Country: US (occurrence: US)
  Receive Date: 20141009
  Receipt Date: 20141009
  Transmission Date: 20150528
  Serious: No
  Sender: FDA-Public Use
  Company Number: US-PFIZER INC-2014272489

PATIENT
  Age: 57 Year
  Sex: Male
  Weight: 91 kg

DRUGS (1)
  1. BOSULIF [Suspect]
     Active Substance: BOSUTINIB MONOHYDRATE
     Indication: CHRONIC MYELOID LEUKAEMIA
     Dosage: 500 MG, 1X/DAY
     Dates: start: 201301, end: 20140829

REACTIONS (4)
  - Penile blister [Recovered/Resolved]
  - Urinary tract disorder [Recovered/Resolved]
  - Skin exfoliation [Recovered/Resolved]
  - Blister rupture [Recovered/Resolved]

NARRATIVE: CASE EVENT DATE: 20140730
